FAERS Safety Report 9645752 (Version 2)
Quarter: 2013Q4

REPORT INFORMATION
  Report Type: Spontaneous
  Country: US (occurrence: None)
  Receive Date: 20131023
  Receipt Date: 20131120
  Transmission Date: 20140711
  Serious: Yes (Other)
  Sender: FDA-Public Use
  Company Number: 2013-US-001965

PATIENT
  Age: 34 Year
  Sex: Male
  Weight: 79.8 kg

DRUGS (5)
  1. XYREM [Suspect]
     Indication: NARCOLEPSY
     Route: 048
     Dates: start: 201208, end: 20131021
  2. SINGULAIR [Concomitant]
  3. NUVIGIL (ARMODAFINIL) [Concomitant]
  4. ZOLOFT (SERTRALINE HYDROCHLORIDE) [Concomitant]
  5. CLARITIN (LORATADINE) [Concomitant]

REACTIONS (5)
  - Drug tolerance [None]
  - Insomnia [None]
  - Stress [None]
  - Tachyphrenia [None]
  - Epistaxis [None]
